FAERS Safety Report 6252346-2 (Version None)
Quarter: 2009Q3

REPORT INFORMATION
  Report Type: 
  Country: None (occurrence: None)
  Receive Date: 20090701
  Receipt Date: 20090623
  Transmission Date: 20100115
  Serious: Yes (Death, Life-Threatening)
  Sender: FDA-Public Use
  Company Number: US-WYE-H09851709

PATIENT
  Age: 70 Year
  Sex: Female

DRUGS (2)
  1. TYGACIL [Suspect]
     Dosage: UNKNOWN
     Route: 042
  2. AMIODARONE HCL [Suspect]
     Dosage: UNKNOWN

REACTIONS (3)
  - BLOOD BILIRUBIN INCREASED [None]
  - DEATH [None]
  - LIVER INJURY [None]
